FAERS Safety Report 8303684-0 (Version None)
Quarter: 2012Q2

REPORT INFORMATION
  Report Type: 
  Country: None (occurrence: None)
  Receive Date: 20120423
  Receipt Date: 20120413
  Transmission Date: 20120825
  Serious: Yes (Hospitalization, Other)
  Sender: FDA-Public Use
  Company Number: CO-PFIZER INC-2012008581

PATIENT
  Age: 65 Year
  Sex: Male

DRUGS (6)
  1. ENBREL [Suspect]
     Dosage: 50 MG, WEEKLY
     Route: 058
     Dates: start: 20100101
  2. METHOTREXATE [Suspect]
     Indication: RHEUMATOID ARTHRITIS
     Dosage: 1 CM PER WEEK
  3. ENBREL [Suspect]
     Indication: RHEUMATOID ARTHRITIS
     Dosage: 50 MG, WEEKLY
     Route: 058
     Dates: start: 20070331, end: 20090101
  4. LOSARTAN [Concomitant]
     Indication: HYPERTENSION
     Dosage: 50 MG EVERY 12 HOURS
     Route: 048
     Dates: start: 20020301
  5. LAMOTRIGINE [Concomitant]
     Indication: EPILEPSY
     Dosage: 100 MG, 1X/DAY
     Route: 048
     Dates: start: 20090301
  6. LEVOTHYROXINE SODIUM [Concomitant]
     Indication: HYPOTHYROIDISM
     Dosage: 100 MG, PER DAY
     Route: 048

REACTIONS (4)
  - FEMUR FRACTURE [None]
  - FALL [None]
  - EPILEPSY [None]
  - LIMB OPERATION [None]
